FAERS Safety Report 16000951 (Version 1)
Quarter: 2019Q1

REPORT INFORMATION
  Report Type: Spontaneous
  Country: US (occurrence: US)
  Receive Date: 20190225
  Receipt Date: 20190225
  Transmission Date: 20190418
  Serious: Yes (Other)
  Sender: FDA-Public Use
  Company Number: US-BAYER-2019-039258

PATIENT
  Age: 48 Year

DRUGS (36)
  1. LYRICA [Suspect]
     Active Substance: PREGABALIN
     Dosage: 150 MG, QD
  2. DEMEROL [Concomitant]
     Active Substance: MEPERIDINE HYDROCHLORIDE
  3. POTASSIUM;SODIUM [Concomitant]
     Dosage: 8 DF
  4. DOCUSATE SODIUM. [Concomitant]
     Active Substance: DOCUSATE SODIUM
     Dosage: 100 MG
  5. NYSTATIN. [Concomitant]
     Active Substance: NYSTATIN
     Indication: URETHRAL DISORDER
     Dosage: 2 DF
  6. VENTOLINE [SALBUTAMOL] [Concomitant]
     Active Substance: ALBUTEROL SULFATE
     Indication: ASTHMA
  7. GUAIFENESIN. [Concomitant]
     Active Substance: GUAIFENESIN
     Indication: SEASONAL ALLERGY
     Dosage: 1200 MG, BID
  8. AMITIZA [Concomitant]
     Active Substance: LUBIPROSTONE
  9. BENZONATATE. [Suspect]
     Active Substance: BENZONATATE
     Indication: COUGH
  10. OMEPRAZOLE. [Concomitant]
     Active Substance: OMEPRAZOLE
     Dosage: 40 MG, QD
  11. SINGULAIR [Concomitant]
     Active Substance: MONTELUKAST SODIUM
     Dosage: 10 MG, QD
  12. MIRTAZAPINE. [Concomitant]
     Active Substance: MIRTAZAPINE
     Dosage: 7.5 MG, QD
  13. LEVAQUIN [Concomitant]
     Active Substance: LEVOFLOXACIN
  14. DILAUDID [Concomitant]
     Active Substance: HYDROMORPHONE HYDROCHLORIDE
  15. DIFLUCAN [Suspect]
     Active Substance: FLUCONAZOLE
  16. BACTROBAN [MUPIROCIN] [Concomitant]
     Dosage: UNK UNK, BID
  17. AMITRIPTYLINE [Concomitant]
     Active Substance: AMITRIPTYLINE
  18. FLONASE ALLERGY RELIEF [Concomitant]
     Active Substance: FLUTICASONE PROPIONATE
     Indication: RHINITIS ALLERGIC
     Dosage: UNK UNK, QD
  19. HYDROXYZINUM [HYDROXYZINE] [Concomitant]
     Dosage: 100 MG
  20. COMBIVENT [Concomitant]
     Active Substance: ALBUTEROL SULFATE\IPRATROPIUM BROMIDE
     Indication: ASTHMA
     Dosage: UNK UNK, TID
  21. CODEINE [Concomitant]
     Active Substance: CODEINE
  22. SODIUM CHLORIDE. [Concomitant]
     Active Substance: SODIUM CHLORIDE
     Dosage: 1 G
  23. CALCIUM + VITAMIN D3 [Concomitant]
     Active Substance: CALCIUM\CHOLECALCIFEROL
     Dosage: 2 DF, QD
  24. TYLENOL [Concomitant]
     Active Substance: ACETAMINOPHEN
     Dosage: 650 MG, BID
  25. GUAIFENESIN. [Concomitant]
     Active Substance: GUAIFENESIN
     Indication: NASAL CONGESTION
  26. ESTRACE [Concomitant]
     Active Substance: ESTRADIOL
     Dosage: 1 G, QOD
  27. BAYER ASPIRIN [Suspect]
     Active Substance: ASPIRIN
     Dosage: UNK
  28. POTASSIUM [POTASSIUM CHLORIDE] [Concomitant]
     Dosage: 1 DF
  29. VIVELLE-DOT [Concomitant]
     Active Substance: ESTRADIOL
     Dosage: 0.1 MG
  30. SALINE [SODIUM CHLORIDE] [Concomitant]
     Active Substance: SODIUM CHLORIDE
     Indication: RHINITIS
     Dosage: UNK UNK, BID
  31. PROCTOSOL [Concomitant]
     Indication: URETHRAL DISORDER
     Dosage: 2.5 %, QD
  32. MORPHINE [Concomitant]
     Active Substance: MORPHINE
  33. SOLU-MEDROL [Concomitant]
     Active Substance: METHYLPREDNISOLONE SODIUM SUCCINATE
  34. QUETIAPINE. [Concomitant]
     Active Substance: QUETIAPINE
     Dosage: 50 MG, QD
  35. MIRALAX [Concomitant]
     Active Substance: POLYETHYLENE GLYCOL 3350
     Dosage: 1 DF, QD
  36. DARVOCET [DEXTROPROPOXYPHENE NAPSILATE;PARACETAMOL] [Concomitant]

REACTIONS (14)
  - Dyspepsia [None]
  - Hallucination [None]
  - Anaphylactic reaction [None]
  - Drug hypersensitivity [None]
  - Blister [None]
  - Gastric ulcer [None]
  - Drug intolerance [None]
  - Rash [None]
  - Chest pain [None]
  - Chest discomfort [None]
  - Limb discomfort [None]
  - Rash vesicular [None]
  - Exfoliative rash [None]
  - Diarrhoea [None]
